FAERS Safety Report 21661782 (Version 1)
Quarter: 2022Q4

REPORT INFORMATION
  Report Type: Spontaneous
  Country: US (occurrence: US)
  Receive Date: 20221130
  Receipt Date: 20221130
  Transmission Date: 20230112
  Serious: Yes (Death)
  Sender: FDA-Public Use
  Company Number: US-002147023-NVSC2022US278044

PATIENT
  Sex: Female

DRUGS (1)
  1. LEQVIO [Suspect]
     Active Substance: INCLISIRAN SODIUM
     Indication: Low density lipoprotein increased
     Dosage: 284 MG, ON DAY 1, THEN 3 MONTHS LATER, THEN EVERY 6 MONTHS THEREAFTER
     Route: 058
     Dates: start: 20220701, end: 20221129

REACTIONS (1)
  - Death [Fatal]
